FAERS Safety Report 11353315 (Version 2)
Quarter: 2015Q3

REPORT INFORMATION
  Report Type: Report from Study
  Country: TW (occurrence: TW)
  Receive Date: 20150807
  Receipt Date: 20150818
  Transmission Date: 20151125
  Serious: Yes (Congenital Anomaly)
  Sender: FDA-Public Use
  Company Number: TW-GLAXOSMITHKLINE INC.-TW2014GSK037627

PATIENT
  Age: 40 Year
  Sex: Female

DRUGS (8)
  1. FOLIC ACID. [Concomitant]
     Active Substance: FOLIC ACID
     Indication: PROPHYLAXIS
     Dosage: 5 MG, QD
     Route: 048
     Dates: start: 20141117, end: 20150102
  2. HYDROXYPROGESTERONE [Concomitant]
     Active Substance: HYDROXYPROGESTERONE
     Indication: PROPHYLAXIS
     Dosage: 125 MG, QD
     Route: 030
     Dates: start: 20141205, end: 20141217
  3. DYDROGESTERONE [Concomitant]
     Active Substance: DYDROGESTERONE
     Indication: PROPHYLAXIS
     Dosage: 10 MG, QD
     Route: 048
     Dates: start: 20141205, end: 20150102
  4. TRIAMCINOLONE [Concomitant]
     Active Substance: TRIAMCINOLONE
     Indication: LIP ULCERATION
     Dosage: 6 G, QD
     Route: 061
     Dates: start: 20150313, end: 20150408
  5. CETIRIZINE [Concomitant]
     Active Substance: CETIRIZINE HYDROCHLORIDE
     Indication: RHINORRHOEA
     Dosage: 10 ML, QD
     Route: 048
     Dates: start: 20150225, end: 20150227
  6. CETIRIZINE [Concomitant]
     Active Substance: CETIRIZINE HYDROCHLORIDE
     Indication: RHINITIS ALLERGIC
     Dosage: 10 ML, QD
     Route: 048
     Dates: start: 20150408, end: 20150410
  7. TYKERB [Suspect]
     Active Substance: LAPATINIB DITOSYLATE
     Indication: BREAST CANCER
  8. TRASTUZUMAB [Suspect]
     Active Substance: TRASTUZUMAB
     Indication: BREAST CANCER
     Dosage: UNK
     Dates: start: 20090819

REACTIONS (2)
  - Exposure during pregnancy [Unknown]
  - Polydactyly [Recovered/Resolved]

NARRATIVE: CASE EVENT DATE: 20150602
